FAERS Safety Report 5903487-8 (Version None)
Quarter: 2008Q3

REPORT INFORMATION
  Report Type: 
  Country: None (occurrence: None)
  Receive Date: 20080919
  Receipt Date: 20080625
  Transmission Date: 20090109
  Serious: No
  Sender: FDA-Public Use
  Company Number: US-WYE-H04751808

PATIENT
  Age: 62 Year
  Sex: Female
  Weight: 61.74 kg

DRUGS (3)
  1. PRISTIQ [Suspect]
     Indication: DEPRESSION
     Dosage: 50 MG 1X PER 1 DAY, ORAL
     Route: 048
     Dates: start: 20080612, end: 20080626
  2. VYTORIN [Concomitant]
  3. ACTONEL [Concomitant]

REACTIONS (7)
  - ABNORMAL DREAMS [None]
  - AGITATION [None]
  - DIZZINESS [None]
  - EMOTIONAL DISORDER [None]
  - FATIGUE [None]
  - HEADACHE [None]
  - NAUSEA [None]
